FAERS Safety Report 25259183 (Version 1)
Quarter: 2025Q2

REPORT INFORMATION
  Report Type: Spontaneous
  Country: GB (occurrence: GB)
  Receive Date: 20250501
  Receipt Date: 20250501
  Transmission Date: 20250716
  Serious: Yes (Death, Other)
  Sender: REGENERON
  Company Number: GB-SA-2025SA124268

PATIENT
  Age: 88 Year
  Sex: Female

DRUGS (1)
  1. PRALUENT [Suspect]
     Active Substance: ALIROCUMAB
     Indication: Hypercholesterolaemia
     Dates: end: 202504

REACTIONS (1)
  - Vascular dementia [Fatal]

NARRATIVE: CASE EVENT DATE: 20250414
